FAERS Safety Report 8973508 (Version 1)
Quarter: 2012Q4

REPORT INFORMATION
  Report Type: 
  Country: FR (occurrence: FR)
  Receive Date: 20121219
  Receipt Date: 20121219
  Transmission Date: 20130627
  Serious: Yes (Hospitalization)
  Sender: FDA-Public Use
  Company Number: FR-SANOFI-AVENTIS-2012SA090341

PATIENT
  Age: 71 Year
  Sex: Female
  Weight: 65 kg

DRUGS (28)
  1. LOVENOX [Suspect]
     Indication: DRUG USE FOR UNKNOWN INDICATION
     Route: 042
     Dates: start: 20090331, end: 20090405
  2. LOVENOX [Suspect]
     Indication: DRUG USE FOR UNKNOWN INDICATION
     Route: 042
     Dates: start: 20090406, end: 20090416
  3. LOVENOX [Suspect]
     Indication: DRUG USE FOR UNKNOWN INDICATION
     Route: 042
     Dates: start: 20090417
  4. TOCILIZUMAB [Suspect]
     Indication: RHEUMATOID ARTHRITIS
     Dosage: form-perfusion
     Route: 042
     Dates: start: 20090325, end: 20090330
  5. TOCILIZUMAB [Suspect]
     Indication: RHEUMATOID ARTHRITIS
     Dosage: form-perfusion
     Route: 042
     Dates: start: 20090325, end: 20090330
  6. TOCILIZUMAB [Suspect]
     Indication: RHEUMATOID ARTHRITIS
     Dosage: form-perfusion
     Route: 042
     Dates: start: 20090325, end: 20090330
  7. TOCILIZUMAB [Suspect]
     Indication: RHEUMATOID ARTHRITIS
     Dosage: form-perfusion
     Route: 042
     Dates: start: 20090325, end: 20090330
  8. TOCILIZUMAB [Suspect]
     Indication: RHEUMATOID ARTHRITIS
     Dosage: form-perfusion
     Route: 042
     Dates: start: 20090429
  9. TOCILIZUMAB [Suspect]
     Indication: RHEUMATOID ARTHRITIS
     Dosage: form-perfusion
     Route: 042
     Dates: start: 20090429
  10. TOCILIZUMAB [Suspect]
     Indication: RHEUMATOID ARTHRITIS
     Dosage: form-perfusion
     Route: 042
     Dates: start: 20090429
  11. TOCILIZUMAB [Suspect]
     Indication: RHEUMATOID ARTHRITIS
     Dosage: form-perfusion
     Route: 042
     Dates: start: 20090429
  12. TOCILIZUMAB [Suspect]
     Indication: RHEUMATOID ARTHRITIS
     Route: 042
     Dates: start: 20090812
  13. TOCILIZUMAB [Suspect]
     Indication: RHEUMATOID ARTHRITIS
     Route: 042
     Dates: start: 20090812
  14. TOCILIZUMAB [Suspect]
     Indication: RHEUMATOID ARTHRITIS
     Route: 042
     Dates: start: 20090812
  15. TOCILIZUMAB [Suspect]
     Indication: RHEUMATOID ARTHRITIS
     Route: 042
     Dates: start: 20090812
  16. TOCILIZUMAB [Suspect]
     Indication: RHEUMATOID ARTHRITIS
     Route: 042
     Dates: start: 20090914
  17. TOCILIZUMAB [Suspect]
     Indication: RHEUMATOID ARTHRITIS
     Route: 042
     Dates: start: 20090914
  18. TOCILIZUMAB [Suspect]
     Indication: RHEUMATOID ARTHRITIS
     Route: 042
     Dates: start: 20090914
  19. TOCILIZUMAB [Suspect]
     Indication: RHEUMATOID ARTHRITIS
     Route: 042
     Dates: start: 20090914
  20. FLUINDIONE [Suspect]
     Indication: DRUG USE FOR UNKNOWN INDICATION
     Route: 048
     Dates: start: 20090414, end: 20090416
  21. PROFENID [Concomitant]
     Dates: start: 19980210
  22. METHOTREXATE [Concomitant]
     Route: 048
     Dates: start: 20000324
  23. SPECIAFOLDINE [Concomitant]
     Dates: start: 20000324
  24. THERAVITE [Concomitant]
  25. EFFEXOR [Concomitant]
     Dates: start: 20080108
  26. BI-PROFENID [Concomitant]
     Route: 048
     Dates: start: 20000626
  27. OMEPRAZOLE [Concomitant]
     Dates: start: 20000427
  28. IXPRIM [Concomitant]
     Dosage: strength 37.5 mg/325 mg
     Dates: start: 20090331

REACTIONS (3)
  - Synovitis [Recovered/Resolved]
  - Thrombosis [Recovered/Resolved]
  - Abdominal wall haematoma [Recovered/Resolved]
